FAERS Safety Report 14391409 (Version 1)
Quarter: 2018Q1

REPORT INFORMATION
  Report Type: Spontaneous
  Country: US (occurrence: US)
  Receive Date: 20180116
  Receipt Date: 20180116
  Transmission Date: 20180509
  Serious: Yes (Other)
  Sender: FDA-Public Use
  Company Number: US-FRESENIUS KABI-FK201800379

PATIENT
  Age: 6 Year
  Sex: Female

DRUGS (18)
  1. CYCLOPHOSPHAMIDE. [Concomitant]
     Active Substance: CYCLOPHOSPHAMIDE
     Indication: CHOROID PLEXUS CARCINOMA
  2. FOLINIC ACID [Concomitant]
     Active Substance: LEUCOVORIN
     Indication: CHOROID PLEXUS CARCINOMA
  3. HYDROCORTISONE. [Concomitant]
     Active Substance: HYDROCORTISONE
     Indication: LI-FRAUMENI SYNDROME
     Route: 065
  4. HYDROCORTISONE. [Concomitant]
     Active Substance: HYDROCORTISONE
     Indication: CHOROID PLEXUS CARCINOMA
  5. CYTARABINE (MANUFACTURER UNKNOWN) [Suspect]
     Active Substance: CYTARABINE
     Indication: LI-FRAUMENI SYNDROME
     Route: 050
  6. VINCRISTINE [Concomitant]
     Active Substance: VINCRISTINE
     Indication: CHOROID PLEXUS CARCINOMA
     Route: 065
  7. METHOTREXATE. [Concomitant]
     Active Substance: METHOTREXATE
     Indication: CHOROID PLEXUS CARCINOMA
  8. CYTARABINE (MANUFACTURER UNKNOWN) [Suspect]
     Active Substance: CYTARABINE
     Indication: CHOROID PLEXUS CARCINOMA
  9. ETOPOSIDE. [Concomitant]
     Active Substance: ETOPOSIDE
     Indication: LI-FRAUMENI SYNDROME
     Route: 065
  10. ETOPOSIDE. [Concomitant]
     Active Substance: ETOPOSIDE
     Indication: CHOROID PLEXUS CARCINOMA
  11. METHOTREXATE. [Concomitant]
     Active Substance: METHOTREXATE
     Indication: LI-FRAUMENI SYNDROME
     Route: 065
  12. CYCLOPHOSPHAMIDE. [Concomitant]
     Active Substance: CYCLOPHOSPHAMIDE
     Indication: LI-FRAUMENI SYNDROME
     Route: 065
  13. FOLINIC ACID [Concomitant]
     Active Substance: LEUCOVORIN
     Indication: CHOROID PLEXUS CARCINOMA
  14. CARBOPLATIN. [Concomitant]
     Active Substance: CARBOPLATIN
     Indication: LI-FRAUMENI SYNDROME
     Route: 065
  15. CARBOPLATIN. [Concomitant]
     Active Substance: CARBOPLATIN
     Indication: CHOROID PLEXUS CARCINOMA
  16. VINCRISTINE [Concomitant]
     Active Substance: VINCRISTINE
     Indication: LI-FRAUMENI SYNDROME
     Route: 065
  17. FOLINIC ACID [Concomitant]
     Active Substance: LEUCOVORIN
     Indication: LI-FRAUMENI SYNDROME
     Route: 065
  18. FOLINIC ACID [Concomitant]
     Active Substance: LEUCOVORIN
     Indication: LI-FRAUMENI SYNDROME
     Route: 065

REACTIONS (2)
  - Product use issue [Recovered/Resolved]
  - Arachnoiditis [Recovered/Resolved]
